FAERS Safety Report 5219532-1 (Version None)
Quarter: 2007Q1

REPORT INFORMATION
  Report Type: 
  Country: None (occurrence: None)
  Receive Date: 20070125
  Receipt Date: 20070115
  Transmission Date: 20070707
  Serious: Yes (Hospitalization, Disabling, Other)
  Sender: FDA-Public Use
  Company Number: JP-PFIZER INC-2006149326

PATIENT
  Sex: Male
  Weight: 72 kg

DRUGS (4)
  1. LIPITOR [Suspect]
     Dosage: DAILY DOSE:10MG
     Route: 048
     Dates: start: 20060928, end: 20061012
  2. ARTIST [Concomitant]
     Route: 048
  3. LASIX [Concomitant]
     Route: 048
  4. RENIVACE [Concomitant]
     Route: 048

REACTIONS (5)
  - APATHY [None]
  - BLOOD TESTOSTERONE DECREASED [None]
  - DECREASED APPETITE [None]
  - LISTLESS [None]
  - MALAISE [None]
